FAERS Safety Report 16207305 (Version 4)
Quarter: 2019Q3

REPORT INFORMATION
  Report Type: Spontaneous
  Country: PL (occurrence: PL)
  Receive Date: 20190417
  Receipt Date: 20190812
  Transmission Date: 20191004
  Serious: Yes (Other)
  Sender: FDA-Public Use
  Company Number: PHHY2019PL081476

PATIENT
  Age: 42 Year
  Sex: Female

DRUGS (14)
  1. COLECALCIFEROL [Suspect]
     Active Substance: CHOLECALCIFEROL
     Indication: BONE DENSITY DECREASED
  2. ATORVASTATIN [Suspect]
     Active Substance: ATORVASTATIN
     Indication: TURNER^S SYNDROME
     Route: 065
  3. ATORVASTATIN [Suspect]
     Active Substance: ATORVASTATIN
     Indication: BLOOD GONADOTROPHIN INCREASED
  4. ESTRADIOL + NORETHISTERONE ACETATE [Concomitant]
     Indication: PRIMARY HYPOGONADISM
     Dosage: UNK, TRANSDERMAL PATCH SYSTEM
     Route: 062
  5. SYSTEN SEQUI [Concomitant]
     Active Substance: ESTRADIOL
     Indication: PRIMARY HYPOGONADISM
     Dosage: UNK, (TRANSDERMAL PATCH SYSTEM)
     Route: 062
  6. COLECALCIFEROL [Suspect]
     Active Substance: CHOLECALCIFEROL
     Indication: TURNER^S SYNDROME
     Dosage: UNK
     Route: 065
  7. ALENDRONIC ACID [Suspect]
     Active Substance: ALENDRONIC ACID
     Indication: BONE DENSITY DECREASED
     Dosage: UNK
     Route: 065
  8. VITAMIN D3 [Suspect]
     Active Substance: CHOLECALCIFEROL
     Indication: BONE DENSITY DECREASED
  9. CALCIUM [Suspect]
     Active Substance: CALCIUM
     Indication: BONE DENSITY DECREASED
  10. TRISEQUENS [Concomitant]
     Active Substance: ESTRADIOL\NORETHINDRONE ACETATE
     Indication: PRIMARY HYPOGONADISM
     Dosage: UNK
     Route: 048
  11. CALCIUM [Suspect]
     Active Substance: CALCIUM
     Indication: TURNER^S SYNDROME
     Dosage: UNK
     Route: 065
  12. LEVOTHYROXINE. [Concomitant]
     Active Substance: LEVOTHYROXINE
     Indication: PRODUCT USED FOR UNKNOWN INDICATION
     Dosage: UNK
     Route: 065
  13. ATORVASTATIN [Suspect]
     Active Substance: ATORVASTATIN
     Indication: FEMALE SEX HORMONE LEVEL ABNORMAL
  14. VITAMIN D3 [Suspect]
     Active Substance: CHOLECALCIFEROL
     Indication: HYPOVITAMINOSIS
     Dosage: UNK
     Route: 065

REACTIONS (6)
  - Hypothyroidism [Recovered/Resolved]
  - Drug ineffective [Unknown]
  - Product use in unapproved indication [Unknown]
  - Deafness [Unknown]
  - Deafness bilateral [Unknown]
  - Off label use [Unknown]

NARRATIVE: CASE EVENT DATE: 2011
